FAERS Safety Report 7647919-6 (Version None)
Quarter: 2011Q3

REPORT INFORMATION
  Report Type: 
  Country: None (occurrence: None)
  Receive Date: 20110726
  Receipt Date: 20110713
  Transmission Date: 20111222
  Serious: Yes (Hospitalization, Disabling)
  Sender: FDA-Public Use
  Company Number: 2011PV000040

PATIENT
  Age: 70 Year
  Sex: Male
  Weight: 71 kg

DRUGS (1)
  1. DEPOCYT [Suspect]
     Indication: PROPHYLAXIS
     Dosage: 50 MG;INTH
     Route: 037
     Dates: start: 20101205, end: 20110314

REACTIONS (1)
  - CAUDA EQUINA SYNDROME [None]
